FAERS Safety Report 9643049 (Version 1)
Quarter: 2013Q4

REPORT INFORMATION
  Report Type: Spontaneous
  Country: FR (occurrence: FR)
  Receive Date: 20131024
  Receipt Date: 20131024
  Transmission Date: 20140711
  Serious: Yes (Hospitalization)
  Sender: FDA-Public Use
  Company Number: FR-JNJFOC-20131010752

PATIENT
  Sex: Female

DRUGS (1)
  1. XEPLION [Suspect]
     Indication: PRODUCT USED FOR UNKNOWN INDICATION
     Route: 030
     Dates: start: 201308

REACTIONS (1)
  - Drug administered at inappropriate site [Unknown]
